FAERS Safety Report 10059263 (Version 2)
Quarter: 2014Q2

REPORT INFORMATION
  Report Type: Report from Study
  Country: JP (occurrence: JP)
  Receive Date: 20140404
  Receipt Date: 20140604
  Transmission Date: 20141212
  Serious: Yes (Death)
  Sender: FDA-Public Use
  Company Number: JP-PFIZER INC-2014092358

PATIENT
  Age: 5 Year
  Sex: Male
  Weight: 11.5 kg

DRUGS (3)
  1. SILDENAFIL CITRATE [Suspect]
     Dosage: 6 MG, 3X/DAY
     Route: 048
     Dates: start: 20091120, end: 20100622
  2. SILDENAFIL CITRATE [Suspect]
     Dosage: 14 MG, DAILY (DIVIDED INTO 3 TIMES)
     Route: 048
     Dates: start: 20100813, end: 20100820
  3. SILDENAFIL CITRATE [Suspect]
     Dosage: 20 MG, 3X/DAY
     Route: 048
     Dates: start: 20100821

REACTIONS (2)
  - Cerebral haemorrhage [Fatal]
  - Disease progression [Fatal]
